FAERS Safety Report 9916257 (Version 2)
Quarter: 2014Q1

REPORT INFORMATION
  Report Type: Spontaneous
  Country: US (occurrence: None)
  Receive Date: 20140219
  Receipt Date: 20140312
  Transmission Date: 20141002
  Serious: Yes (Hospitalization)
  Sender: FDA-Public Use
  Company Number: UTC-044727

PATIENT
  Age: 67 Year
  Sex: Female
  Weight: 110.4 kg

DRUGS (4)
  1. TYVASO (6 MICROGRAM, AEROSOL FOR INHALATION) (TREPROSTINIL SODIUM) [Suspect]
     Indication: COR PULMONALE CHRONIC
     Dosage: 18-72MCG (4 IN 1 D), INHALATION
     Route: 055
     Dates: start: 20091208
  2. TRACLEER (BOSENTAN) [Concomitant]
  3. REVATIO (SILDENAFIL CITRATE) [Concomitant]
  4. COUMADIN (WARFARIN SODIUM) [Concomitant]

REACTIONS (3)
  - Gastrointestinal haemorrhage [None]
  - Decreased appetite [None]
  - Ulcer haemorrhage [None]
